FAERS Safety Report 8829519 (Version 2)
Quarter: 2012Q4

REPORT INFORMATION
  Report Type: Report from Study
  Country: US (occurrence: US)
  Receive Date: 20121008
  Receipt Date: 20121030
  Transmission Date: 20130627
  Serious: Yes (Hospitalization, Other)
  Sender: FDA-Public Use
  Company Number: US-PFIZER INC-2012244218

PATIENT
  Age: 61 Year
  Sex: Female
  Weight: 133.1 kg

DRUGS (11)
  1. DOXORUBICIN HCL [Suspect]
     Indication: SARCOMA
     Dosage: 1 DF, other; 181 mg
     Route: 065
     Dates: start: 20120829, end: 20120829
  2. DOXORUBICIN HCL [Suspect]
     Dosage: 199 mg, UNK
     Dates: start: 20120905, end: 20120905
  3. DOXORUBICIN HCL [Suspect]
     Dosage: 1 DF other, unknown
     Dates: start: 20121005
  4. PDGFRA [Suspect]
     Indication: SARCOMA
     Dosage: Formulation: Liquid. 1 DF, other
     Route: 065
     Dates: start: 20120829, end: 20120905
  5. PDGFRA [Suspect]
     Dosage: 1 DF, other; Unknown
     Dates: start: 20121005
  6. BISOPROLOL FUMARATE [Concomitant]
     Dosage: UNK
     Dates: start: 2007
  7. CELEBREX [Concomitant]
     Dosage: UNK
     Dates: start: 2011
  8. COLACE [Concomitant]
     Dosage: UNK
  9. GABAPENTIN [Concomitant]
     Dosage: UNK
     Dates: start: 2009
  10. PRILOSEC [Concomitant]
     Dosage: UNK
     Dates: start: 2002
  11. LOTENSIN [Concomitant]
     Dosage: UNK
     Dates: start: 2002

REACTIONS (1)
  - Cellulitis [Recovered/Resolved]
